FAERS Safety Report 12976655 (Version 1)
Quarter: 2016Q4

REPORT INFORMATION
  Report Type: Report from Study
  Country: CA (occurrence: CA)
  Receive Date: 20161127
  Receipt Date: 20161127
  Transmission Date: 20170207
  Serious: Yes (Death, Other)
  Sender: FDA-Public Use
  Company Number: CA-AMGEN-CANSL2016165819

PATIENT
  Age: 62 Year
  Sex: Female

DRUGS (1)
  1. XGEVA [Suspect]
     Active Substance: DENOSUMAB
     Indication: BREAST CANCER
     Dosage: 120 MG/1.70 ML, UNK
     Route: 065
     Dates: start: 20160427

REACTIONS (1)
  - Death [Fatal]

NARRATIVE: CASE EVENT DATE: 20161104
